FAERS Safety Report 23479377 (Version 1)
Quarter: 2024Q1

REPORT INFORMATION
  Report Type: Spontaneous
  Country: FR (occurrence: FR)
  Receive Date: 20240205
  Receipt Date: 20240205
  Transmission Date: 20240409
  Serious: Yes (Hospitalization, Other)
  Sender: FDA-Public Use
  Company Number: FR-AFSSAPS-PA2023001819

PATIENT
  Age: 85 Year
  Sex: Male
  Weight: 50 kg

DRUGS (12)
  1. ACETAMINOPHEN [Suspect]
     Active Substance: ACETAMINOPHEN
     Indication: Product used for unknown indication
     Dosage: UNK
     Route: 065
  2. PREGABALIN [Suspect]
     Active Substance: PREGABALIN
     Indication: Anxiety
     Dosage: 25 MILLIGRAM, ONCE A DAY
     Route: 048
     Dates: start: 20230721, end: 20230725
  3. PREGABALIN [Suspect]
     Active Substance: PREGABALIN
     Dosage: 50 MILLIGRAM, ONCE A DAY
     Route: 048
     Dates: start: 20230725, end: 20230730
  4. PREGABALIN [Suspect]
     Active Substance: PREGABALIN
     Dosage: 75 MILLIGRAM, ONCE A DAY
     Route: 048
     Dates: start: 20230731, end: 20230810
  5. SERTRALINE HYDROCHLORIDE [Suspect]
     Active Substance: SERTRALINE HYDROCHLORIDE
     Indication: Anxiety disorder
     Dosage: 50 MILLIGRAM, ONCE A DAY
     Route: 048
     Dates: start: 20230801, end: 20230803
  6. SERTRALINE HYDROCHLORIDE [Suspect]
     Active Substance: SERTRALINE HYDROCHLORIDE
     Dosage: 100 MILLIGRAM, ONCE A DAY
     Route: 048
     Dates: start: 20230804, end: 20230807
  7. AUGMENTIN [Suspect]
     Active Substance: AMOXICILLIN\CLAVULANATE POTASSIUM
     Indication: Bronchitis
     Dosage: 50 MILLIGRAM, ONCE A DAY
     Route: 048
     Dates: start: 20230802, end: 20230807
  8. DIAZEPAM [Concomitant]
     Active Substance: DIAZEPAM
     Indication: Anxiety disorder
     Dosage: UNK
     Route: 048
     Dates: start: 20230721, end: 20230807
  9. DIAZEPAM [Concomitant]
     Active Substance: DIAZEPAM
     Dosage: UNK
     Route: 048
     Dates: start: 20230810
  10. ESCITALOPRAM [Concomitant]
     Active Substance: ESCITALOPRAM OXALATE
     Indication: Anxiety disorder
     Dosage: 500 MILLIGRAM, ONCE A DAY
     Route: 048
  11. ALFUZOSIN HYDROCHLORIDE [Concomitant]
     Active Substance: ALFUZOSIN HYDROCHLORIDE
     Indication: Product used for unknown indication
     Dosage: UNK
     Route: 048
     Dates: end: 20230807
  12. PRIMIDONE [Concomitant]
     Active Substance: PRIMIDONE
     Indication: Product used for unknown indication
     Dosage: UNK
     Route: 048

REACTIONS (1)
  - Hepatitis cholestatic [Recovering/Resolving]

NARRATIVE: CASE EVENT DATE: 20230807
